FAERS Safety Report 17599691 (Version 1)
Quarter: 2020Q1

REPORT INFORMATION
  Report Type: Spontaneous
  Country: US (occurrence: US)
  Receive Date: 20200330
  Receipt Date: 20200330
  Transmission Date: 20200409
  Serious: Yes (Death)
  Sender: FDA-Public Use
  Company Number: None

PATIENT
  Age: 90 Year
  Sex: Male
  Weight: 54 kg

DRUGS (10)
  1. EMERGEN-C [Concomitant]
     Active Substance: VITAMINS
  2. LASIX [Suspect]
     Active Substance: FUROSEMIDE
     Indication: OEDEMA
     Dosage: ?          QUANTITY:1 TABLET(S);OTHER ROUTE:CRUSHED PILL  POURED INTO G-TUBE?
     Dates: start: 20191029, end: 20191218
  3. NEXIUM [Concomitant]
     Active Substance: ESOMEPRAZOLE MAGNESIUM
  4. CULTURELLE [Concomitant]
     Active Substance: LACTOBACILLUS RHAMNOSUS
  5. LASIX [Suspect]
     Active Substance: FUROSEMIDE
     Indication: CARDIAC FAILURE CONGESTIVE
     Dosage: ?          QUANTITY:1 TABLET(S);OTHER ROUTE:CRUSHED PILL  POURED INTO G-TUBE?
     Dates: start: 20191029, end: 20191218
  6. ALBUTEROL. [Concomitant]
     Active Substance: ALBUTEROL
  7. VENOFER [Suspect]
     Active Substance: IRON SUCROSE
     Indication: ANAEMIA
     Dosage: ?          QUANTITY:5 DOSES;OTHER FREQUENCY:5X^S ALTERN DAYS;OTHER ROUTE:MIDLINE IV?
     Dates: start: 20191206, end: 20191214
  8. LASIX [Concomitant]
     Active Substance: FUROSEMIDE
  9. FERROUS SULFATE. [Concomitant]
     Active Substance: FERROUS SULFATE
  10. BANATROL [Concomitant]

REACTIONS (3)
  - Dehydration [None]
  - Hypotension [None]
  - Hypovolaemia [None]

NARRATIVE: CASE EVENT DATE: 20191219
